FAERS Safety Report 4773423-9 (Version None)
Quarter: 2005Q3

REPORT INFORMATION
  Report Type: 
  Country: None (occurrence: None)
  Receive Date: 20050920
  Receipt Date: 20050908
  Transmission Date: 20060218
  Serious: Yes (Hospitalization, Other)
  Sender: FDA-Public Use
  Company Number: US-JNJFOC-20050605523

PATIENT
  Sex: Female

DRUGS (8)
  1. REMICADE [Suspect]
     Indication: CROHN'S DISEASE
     Route: 042
  2. ZOCOR [Concomitant]
  3. SYNTHROID [Concomitant]
  4. TRIAMCINOLONE CREAM [Concomitant]
     Dosage: AS NEEDED
  5. CLARITIN [Concomitant]
  6. PREDNISONE [Concomitant]
     Route: 048
  7. HYDROXYZINE [Concomitant]
     Dosage: WHENEVER NECESSARY
     Route: 048
  8. SORIATANE [Concomitant]
     Route: 048

REACTIONS (12)
  - ADULT T-CELL LYMPHOMA/LEUKAEMIA [None]
  - ALOPECIA [None]
  - CROHN'S DISEASE [None]
  - DEHYDRATION [None]
  - DERMATITIS [None]
  - DERMATITIS PSORIASIFORM [None]
  - DIVERTICULITIS [None]
  - MYCOSIS FUNGOIDES [None]
  - SEBORRHOEIC DERMATITIS [None]
  - SKIN OEDEMA [None]
  - STAPHYLOCOCCAL INFECTION [None]
  - URINARY TRACT INFECTION [None]
